FAERS Safety Report 5873835-6 (Version None)
Quarter: 2008Q3

REPORT INFORMATION
  Report Type: 
  Country: None (occurrence: None)
  Receive Date: 20080908
  Receipt Date: 20080828
  Transmission Date: 20090109
  Serious: Yes (Death, Other)
  Sender: FDA-Public Use
  Company Number: CA-JNJFOC-20080900285

PATIENT
  Age: 72 Year
  Sex: Male
  Weight: 54.43 kg

DRUGS (6)
  1. REMICADE [Suspect]
     Indication: RHEUMATOID ARTHRITIS
     Route: 042
  2. METHOTREXATE [Concomitant]
  3. SYNTHROID [Concomitant]
     Dosage: DOSE: 175 MCG
     Route: 048
  4. LIPITOR [Concomitant]
     Route: 048
  5. NORVASC [Concomitant]
     Route: 048
  6. ASPIRIN [Concomitant]
     Route: 048

REACTIONS (6)
  - AORTIC ANEURYSM [None]
  - DEATH [None]
  - HILAR LYMPHADENOPATHY [None]
  - LUNG NEOPLASM [None]
  - METASTASES TO LIVER [None]
  - NON-SMALL CELL LUNG CANCER METASTATIC [None]
